FAERS Safety Report 4763413-4 (Version None)
Quarter: 2005Q3

REPORT INFORMATION
  Report Type: 
  Country: None (occurrence: None)
  Receive Date: 20050908
  Receipt Date: 20050902
  Transmission Date: 20060218
  Serious: Yes (Other)
  Sender: FDA-Public Use
  Company Number: PHNU2005DE03047

PATIENT
  Sex: Male

DRUGS (1)
  1. LAMISIL [Suspect]
     Indication: NAIL TINEA
     Dosage: 4 WEEKS THERAPY, INTERRUPTION FOR 4 WEEKS
     Dates: start: 20041101

REACTIONS (5)
  - BLOOD CREATININE INCREASED [None]
  - NAUSEA [None]
  - OLIGURIA [None]
  - RENAL IMPAIRMENT [None]
  - RENAL PAIN [None]
